FAERS Safety Report 4493241-9 (Version None)
Quarter: 2004Q4

REPORT INFORMATION
  Report Type: 
  Country: None (occurrence: None)
  Receive Date: 20041029
  Receipt Date: 20040921
  Transmission Date: 20050328
  Serious: Yes (Death)
  Sender: FDA-Public Use
  Company Number: RB-948-2004

PATIENT
  Sex: Female

DRUGS (5)
  1. BUPRENORPHINE HCL [Suspect]
     Dosage: SL
     Route: 060
     Dates: end: 20030201
  2. CYAMEMAZINE [Suspect]
     Dosage: PO
     Route: 048
     Dates: end: 20030201
  3. AMITRIPTYLINE HYDROCHLORIDE [Suspect]
     Dosage: PO
     Route: 048
  4. COCAINE [Concomitant]
  5. CANNABIS [Concomitant]

REACTIONS (5)
  - BLOOD ALCOHOL INCREASED [None]
  - DRUG ABUSER [None]
  - DRUG SCREEN POSITIVE [None]
  - MULTIPLE DRUG OVERDOSE [None]
  - TOXICOLOGIC TEST ABNORMAL [None]
